FAERS Safety Report 16619963 (Version 1)
Quarter: 2019Q3

REPORT INFORMATION
  Report Type: Spontaneous
  Country: US (occurrence: US)
  Receive Date: 20190723
  Receipt Date: 20190723
  Transmission Date: 20191004
  Serious: Yes (Other)
  Sender: FDA-Public Use
  Company Number: US-MALLINCKRODT-T201901626

PATIENT
  Sex: Female

DRUGS (3)
  1. H.P. ACTHAR [Suspect]
     Active Substance: CORTICOTROPIN
     Dosage: 80 UNITS/1 ML, 2 TIMES PER WEEK (MONDAY/SATURDAY) FOR 22 WEEKS
     Route: 058
     Dates: start: 2019, end: 20190615
  2. H.P. ACTHAR [Suspect]
     Active Substance: CORTICOTROPIN
     Indication: NEPHROTIC SYNDROME
     Dosage: 1 ML, TWICE WEEKLY
     Route: 058
     Dates: start: 20181208, end: 20190121
  3. H.P. ACTHAR [Suspect]
     Active Substance: CORTICOTROPIN
     Dosage: 40 UNITS/0.5 ML FOR 2 WEEKS
     Route: 058
     Dates: start: 2019, end: 2019

REACTIONS (3)
  - Neoplasm malignant [Recovering/Resolving]
  - Staphylococcal infection [Unknown]
  - Drug ineffective [Unknown]
